FAERS Safety Report 24057295 (Version 1)
Quarter: 2024Q3

REPORT INFORMATION
  Report Type: Spontaneous
  Country: JP (occurrence: JP)
  Receive Date: 20240706
  Receipt Date: 20240706
  Transmission Date: 20241016
  Serious: Yes (Other)
  Sender: ABBVIE
  Company Number: JP-LUNDBECK-DKLU3049200

PATIENT
  Age: 20 Year
  Sex: Male

DRUGS (7)
  1. LEXAPRO [Suspect]
     Active Substance: ESCITALOPRAM OXALATE
     Indication: Depression
     Dosage: 10 MILLIGRAM, QD
     Route: 048
     Dates: start: 20211204
  2. TRINTELLIX [Suspect]
     Active Substance: VORTIOXETINE HYDROBROMIDE
     Indication: Depression
     Dosage: 20 MILLIGRAM, QD
     Route: 048
     Dates: start: 20210731, end: 20211203
  3. INTUNIV [Suspect]
     Active Substance: GUANFACINE HYDROCHLORIDE
     Indication: Attention deficit hyperactivity disorder
     Dosage: 4 MILLIGRAM, QD, STRENGTH 1 MILLIGRAM
     Route: 048
     Dates: start: 20211116
  4. INTUNIV [Suspect]
     Active Substance: GUANFACINE HYDROCHLORIDE
     Indication: Attention deficit hyperactivity disorder
     Dosage: 3 MILLIGRAM, QD, STRENGTH 1 MILLIGRAM
     Route: 048
     Dates: start: 20211030, end: 20211115
  5. INTUNIV [Suspect]
     Active Substance: GUANFACINE HYDROCHLORIDE
     Indication: Attention deficit hyperactivity disorder
     Dosage: 2 MILLIGRAM, QD, STRENGTH 1 MILLIGRAM
     Route: 048
     Dates: start: 20211023, end: 20211029
  6. INTUNIV [Suspect]
     Active Substance: GUANFACINE HYDROCHLORIDE
     Indication: Attention deficit hyperactivity disorder
     Dosage: 3 MILLIGRAM, QD, STRENGTH 1 MILLIGRAM
     Route: 048
     Dates: start: 20220423
  7. MIRTAZAPINE [Concomitant]
     Active Substance: MIRTAZAPINE
     Indication: Depressive symptom
     Dosage: UNK

REACTIONS (2)
  - Hypotension [Recovered/Resolved]
  - Dizziness postural [Recovered/Resolved]

NARRATIVE: CASE EVENT DATE: 20220301
